FAERS Safety Report 9059202 (Version 1)
Quarter: 2013Q1

REPORT INFORMATION
  Report Type: Spontaneous
  Country: US (occurrence: US)
  Receive Date: 20130211
  Receipt Date: 20130211
  Transmission Date: 20140127
  Serious: No
  Sender: FDA-Public Use
  Company Number: US-BRISTOL-MYERS SQUIBB COMPANY-17188822

PATIENT
  Age: 66 Year
  Sex: Female
  Weight: 81.63 kg

DRUGS (12)
  1. KOMBIGLYZE XR [Suspect]
     Indication: DIABETES MELLITUS
     Dosage: 1 DF = 2.5MG/1000MG
  2. METFORMIN HCL TABS [Suspect]
     Indication: DIABETES MELLITUS
     Dosage: 1 DF = 1 TABS
     Dates: start: 1998
  3. LANTUS [Concomitant]
     Indication: DIABETES MELLITUS
     Dosage: SOLOSTAR PEN 24-HOUR INSULIN 25U QHS?50 U
  4. LISINOPRIL [Concomitant]
  5. FLONASE [Concomitant]
     Dosage: 2 SPRAYS IN EACH NOSTRIL QAM
     Route: 045
  6. COREG [Concomitant]
  7. LOSARTAN [Concomitant]
  8. PRAVASTATINE [Concomitant]
  9. ASPIRIN [Concomitant]
  10. VITAMIN D [Concomitant]
     Dosage: 1 DF = 2000 UNITS NOS
  11. VITAMIN B12 [Concomitant]
  12. CENTRUM SILVER [Concomitant]

REACTIONS (4)
  - Diarrhoea [Unknown]
  - Drug ineffective [Unknown]
  - Constipation [Unknown]
  - Trigger finger [Unknown]
